FAERS Safety Report 5247501-4 (Version None)
Quarter: 2007Q1

REPORT INFORMATION
  Report Type: 
  Country: None (occurrence: None)
  Receive Date: 20070227
  Receipt Date: 20070219
  Transmission Date: 20070707
  Serious: Yes (Death)
  Sender: FDA-Public Use
  Company Number: DK-ELI_LILLY_AND_COMPANY-DK200610002001

PATIENT
  Age: 71 Year
  Sex: Female
  Weight: 38.8 kg

DRUGS (1)
  1. TERIPARATIDE [Suspect]
     Indication: OSTEOPOROSIS
     Dosage: 20 UG, DAILY (1/D)
     Route: 058
     Dates: start: 20050513, end: 20060824

REACTIONS (2)
  - HYPERCALCAEMIA [None]
  - PNEUMONIA [None]
